FAERS Safety Report 14953505 (Version 1)
Quarter: 2018Q2

REPORT INFORMATION
  Report Type: Spontaneous
  Country: US (occurrence: US)
  Receive Date: 20180530
  Receipt Date: 20180530
  Transmission Date: 20180711
  Serious: No
  Sender: FDA-Public Use
  Company Number: US-BAYER-2018-097096

PATIENT

DRUGS (2)
  1. CHAMOMILE [Concomitant]
     Active Substance: CHAMOMILE
  2. ALEVE PM [Suspect]
     Active Substance: DIPHENHYDRAMINE HYDROCHLORIDE\NAPROXEN SODIUM
     Dosage: UNK

REACTIONS (2)
  - Wrong technique in product usage process [None]
  - Product use in unapproved indication [None]
